FAERS Safety Report 15725324 (Version 1)
Quarter: 2018Q4

REPORT INFORMATION
  Report Type: Spontaneous
  Country: SE (occurrence: SE)
  Receive Date: 20181215
  Receipt Date: 20181215
  Transmission Date: 20190205
  Serious: Yes (Other)
  Sender: FDA-Public Use
  Company Number: SE-TEVA-2018-SE-985464

PATIENT
  Age: 54 Year
  Sex: Male

DRUGS (1)
  1. ALLOPURINOL. [Suspect]
     Active Substance: ALLOPURINOL
     Indication: GOUT
     Dosage: STARTED WITH ALLOPURINOL 100 MG WITHOUT EFFECT ON GOUT.
     Route: 065
     Dates: start: 2010, end: 2011

REACTIONS (2)
  - Erectile dysfunction [Recovered/Resolved with Sequelae]
  - Prostatic specific antigen increased [Recovered/Resolved with Sequelae]

NARRATIVE: CASE EVENT DATE: 2010
